FAERS Safety Report 9063765 (Version 2)
Quarter: 2013Q1

REPORT INFORMATION
  Report Type: Spontaneous
  Country: FR (occurrence: FR)
  Receive Date: 20130131
  Receipt Date: 20130214
  Transmission Date: 20140127
  Serious: Yes (Hospitalization, Congenital Anomaly, Other)
  Sender: FDA-Public Use
  Company Number: FR-RB-JP/980427/27

PATIENT
  Sex: Male
  Weight: 2.9 kg

DRUGS (2)
  1. SUBUTEX [Suspect]
     Indication: DRUG DEPENDENCE
     Dosage: DOSE DETAILS UNKNOWN
     Route: 064
  2. HEROIN [Suspect]
     Indication: DRUG DEPENDENCE
     Dosage: DRUG DETAILS UNKNOWN
     Route: 064

REACTIONS (3)
  - Talipes [Recovered/Resolved with Sequelae]
  - Drug withdrawal syndrome neonatal [Recovered/Resolved with Sequelae]
  - Foetal exposure during pregnancy [Recovered/Resolved]
